FAERS Safety Report 6386784-4 (Version None)
Quarter: 2009Q3

REPORT INFORMATION
  Report Type: 
  Country: None (occurrence: None)
  Receive Date: 20090930
  Receipt Date: 20090930
  Transmission Date: 20100115
  Serious: Yes (Hospitalization)
  Sender: FDA-Public Use
  Company Number: None

PATIENT
  Age: 81 Year
  Sex: Male
  Weight: 77 kg

DRUGS (1)
  1. WARFARIN SODIUM [Suspect]
     Dosage: MG PO
     Route: 048
     Dates: start: 20090527, end: 20090913

REACTIONS (2)
  - GASTRIC HAEMORRHAGE [None]
  - GASTRITIS [None]
